FAERS Safety Report 16886910 (Version 1)
Quarter: 2019Q4

REPORT INFORMATION
  Report Type: Report from Study
  Country: CA (occurrence: CA)
  Receive Date: 20191004
  Receipt Date: 20191004
  Transmission Date: 20200122
  Serious: Yes (Other)
  Sender: FDA-Public Use
  Company Number: CA-GLAXOSMITHKLINE-CA2019AMR175249

PATIENT
  Sex: Female
  Weight: 180.4 kg

DRUGS (4)
  1. XOLAIR [Suspect]
     Active Substance: OMALIZUMAB
  2. SALBUTAMOL SULPHATE [Suspect]
     Active Substance: ALBUTEROL SULFATE
     Indication: ASTHMA
     Dosage: UNK
  3. SPIRIVA [Suspect]
     Active Substance: TIOTROPIUM BROMIDE MONOHYDRATE
     Indication: PRODUCT USED FOR UNKNOWN INDICATION
     Dosage: UNK UNK, QD
  4. SYMBICORT [Suspect]
     Active Substance: BUDESONIDE\FORMOTEROL FUMARATE DIHYDRATE
     Indication: PRODUCT USED FOR UNKNOWN INDICATION
     Dosage: 2 PUFF(S), TID

REACTIONS (11)
  - Lung disorder [Unknown]
  - Obstructive airways disorder [Unknown]
  - Total lung capacity increased [Unknown]
  - Restrictive pulmonary disease [Unknown]
  - Dyspnoea [Not Recovered/Not Resolved]
  - Alveolar lung disease [Unknown]
  - Flatulence [Unknown]
  - Inspiratory capacity decreased [Unknown]
  - Chest discomfort [Unknown]
  - Asthma [Unknown]
  - Forced expiratory volume decreased [Unknown]
